FAERS Safety Report 4595180-1 (Version None)
Quarter: 2005Q1

REPORT INFORMATION
  Report Type: 
  Country: None (occurrence: None)
  Receive Date: 20050225
  Receipt Date: 20050106
  Transmission Date: 20050727
  Serious: Yes (Other)
  Sender: FDA-Public Use
  Company Number: 2005023579

PATIENT
  Sex: Male

DRUGS (3)
  1. CELEBREX [Suspect]
     Indication: HIP ARTHROPLASTY
     Dosage: 200 MG
     Dates: start: 20041215
  2. ROFECOXIB [Concomitant]
  3. VICODIN [Concomitant]

REACTIONS (1)
  - TRIPLE VESSEL BYPASS GRAFT [None]
